FAERS Safety Report 7168077-0 (Version None)
Quarter: 2010Q4

REPORT INFORMATION
  Report Type: 
  Country: None (occurrence: None)
  Receive Date: 20101202
  Receipt Date: 20101119
  Transmission Date: 20110411
  Serious: Yes (Other)
  Sender: FDA-Public Use
  Company Number: USA/USA/10/0016464

PATIENT
  Age: 44 Year
  Sex: Female

DRUGS (3)
  1. CITALOPRAM HYDROBROMIDE [Suspect]
     Indication: DEPRESSION
     Dosage: 20 MG, 1 IN 1 D, ORAL
     Route: 048
     Dates: start: 20101023
  2. CELEXA [Concomitant]
  3. ELAVIL [Concomitant]

REACTIONS (3)
  - CONFUSIONAL STATE [None]
  - CONVULSION [None]
  - ROAD TRAFFIC ACCIDENT [None]
